FAERS Safety Report 24715181 (Version 1)
Quarter: 2024Q4

REPORT INFORMATION
  Report Type: Report from Study
  Country: US (occurrence: US)
  Receive Date: 20241210
  Receipt Date: 20241210
  Transmission Date: 20250115
  Serious: Yes (Other)
  Sender: ABBVIE
  Company Number: US-ABBVIE-5959697

PATIENT
  Age: 62 Year
  Sex: Female
  Weight: 100 kg

DRUGS (1)
  1. HUMIRA [Suspect]
     Active Substance: ADALIMUMAB
     Indication: Rheumatoid arthritis
     Dosage: FORM STRENGTH: 40 MILLIGRAM
     Route: 058
     Dates: start: 20181219, end: 202409

REACTIONS (1)
  - Throat cancer [Not Recovered/Not Resolved]

NARRATIVE: CASE EVENT DATE: 20240701
